FAERS Safety Report 6111338-4 (Version None)
Quarter: 2009Q1

REPORT INFORMATION
  Report Type: 
  Country: None (occurrence: None)
  Receive Date: 20090311
  Receipt Date: 20090304
  Transmission Date: 20090719
  Serious: Yes (Hospitalization)
  Sender: FDA-Public Use
  Company Number: A0735849A

PATIENT
  Age: 57 Year
  Sex: Female
  Weight: 84.1 kg

DRUGS (10)
  1. AVANDIA [Suspect]
     Indication: DIABETES MELLITUS
     Dosage: 8MG PER DAY
     Route: 048
     Dates: start: 19991201, end: 20070501
  2. GLUCOPHAGE [Concomitant]
  3. LANTUS [Concomitant]
  4. AMARYL [Concomitant]
  5. TAMOXIFEN CITRATE [Concomitant]
  6. NEURONTIN [Concomitant]
  7. SANCTURA [Concomitant]
  8. DETROL [Concomitant]
  9. FERROUS SULFATE TAB [Concomitant]
  10. POTASSIUM CHLORIDE [Concomitant]

REACTIONS (5)
  - CARDIAC FAILURE CONGESTIVE [None]
  - CEREBROVASCULAR ACCIDENT [None]
  - CORONARY ARTERY DISEASE [None]
  - HEART INJURY [None]
  - MYOCARDIAL INFARCTION [None]
